FAERS Safety Report 4809587-8 (Version None)
Quarter: 2005Q4

REPORT INFORMATION
  Report Type: 
  Country: None (occurrence: None)
  Receive Date: 20051025
  Receipt Date: 20050722
  Transmission Date: 20060501
  Serious: Yes (Hospitalization)
  Sender: FDA-Public Use
  Company Number: US-MERCK-0507USA03826

PATIENT
  Age: 65 Year
  Sex: Male
  Weight: 107 kg

DRUGS (8)
  1. VIOXX [Suspect]
     Indication: ARTHRALGIA
     Route: 048
     Dates: start: 20000418, end: 20021001
  2. VIOXX [Suspect]
     Route: 048
     Dates: start: 20021031, end: 20040501
  3. DIAZEPAM [Concomitant]
     Route: 065
  4. MIRALAX [Concomitant]
     Route: 065
  5. NU-IRON [Concomitant]
     Route: 065
  6. NULYTELY [Concomitant]
     Route: 065
  7. PREVACID [Concomitant]
     Indication: GASTROOESOPHAGEAL REFLUX DISEASE
     Route: 065
  8. OXYIR [Concomitant]
     Route: 065
     Dates: start: 20020508, end: 20031001

REACTIONS (8)
  - ADVERSE EVENT [None]
  - ARTHROPATHY [None]
  - ASTHENIA [None]
  - CEREBROVASCULAR ACCIDENT [None]
  - CHEST PAIN [None]
  - GLAUCOMA [None]
  - GOUT [None]
  - HERNIA [None]
